FAERS Safety Report 25181526 (Version 3)
Quarter: 2025Q3

REPORT INFORMATION
  Report Type: Spontaneous
  Country: IN (occurrence: IN)
  Receive Date: 20250410
  Receipt Date: 20250703
  Transmission Date: 20251021
  Serious: Yes (Other)
  Sender: SANDOZ
  Company Number: IN-SANDOZ-SDZ2025IN006693

PATIENT
  Age: 60 Year
  Sex: Female

DRUGS (4)
  1. MYFORTIC [Suspect]
     Active Substance: MYCOPHENOLATE SODIUM
     Indication: Renal transplant
     Dosage: 360 MG, TID
     Route: 048
  2. MYFORTIC [Suspect]
     Active Substance: MYCOPHENOLATE SODIUM
     Dosage: 360 MG, BID
     Route: 048
  3. TACROLIMUS [Suspect]
     Active Substance: TACROLIMUS
     Route: 048
  4. TACROLIMUS [Suspect]
     Active Substance: TACROLIMUS
     Indication: Renal transplant
     Dosage: 2.5 MG, BID
     Route: 048

REACTIONS (23)
  - Idiopathic pneumonia syndrome [Unknown]
  - Rheumatoid arthritis [Unknown]
  - Acute kidney injury [Unknown]
  - Urosepsis [Unknown]
  - Heart failure with reduced ejection fraction [Unknown]
  - Lower respiratory tract infection [Unknown]
  - Cardiac failure acute [Unknown]
  - Pneumonia klebsiella [Unknown]
  - Toxicity to various agents [Unknown]
  - Hypoalbuminaemia [Unknown]
  - Electrolyte imbalance [Unknown]
  - Gastroenteritis [Unknown]
  - Infection [Unknown]
  - Blood test abnormal [Unknown]
  - Dehydration [Unknown]
  - Urinary tract infection [Unknown]
  - Abdominal pain [Unknown]
  - Asthenia [Unknown]
  - Nausea [Unknown]
  - Diarrhoea [Unknown]
  - Vomiting [Unknown]
  - Off label use [Unknown]
  - Product prescribing issue [Unknown]

NARRATIVE: CASE EVENT DATE: 20250122
